FAERS Safety Report 11299317 (Version 1)
Quarter: 2015Q3

REPORT INFORMATION
  Report Type: Spontaneous
  Country: US (occurrence: US)
  Receive Date: 20150722
  Receipt Date: 20150722
  Transmission Date: 20151125
  Serious: No
  Sender: FDA-Public Use
  Company Number: US-ELI LILLY AND COMPANY-US201209005673

PATIENT
  Sex: Male

DRUGS (4)
  1. HUMATROPE [Suspect]
     Active Substance: SOMATROPIN
     Indication: HYPOPITUITARISM
     Dosage: 0.6 MG, QD
  2. CORTEF [Concomitant]
     Active Substance: HYDROCORTISONE
  3. ANDROGEL [Concomitant]
     Active Substance: TESTOSTERONE
  4. SYNTHROID [Concomitant]
     Active Substance: LEVOTHYROXINE SODIUM

REACTIONS (3)
  - Incorrect dose administered by device [Unknown]
  - Expired product administered [Unknown]
  - Drug dose omission [Unknown]
